FAERS Safety Report 5310471-4 (Version None)
Quarter: 2007Q2

REPORT INFORMATION
  Report Type: 
  Country: None (occurrence: None)
  Receive Date: 20070427
  Receipt Date: 20070418
  Transmission Date: 20071010
  Serious: Yes (Other)
  Sender: FDA-Public Use
  Company Number: US-JNJFOC-20070403847

PATIENT
  Sex: Female

DRUGS (4)
  1. REMICADE [Suspect]
     Indication: RHEUMATOID ARTHRITIS
     Route: 042
  2. DURAGESIC-100 [Concomitant]
  3. STEROIDS [Concomitant]
  4. MULTIPLE OTHER MEDICATIONS [Concomitant]

REACTIONS (3)
  - BLADDER DISORDER [None]
  - LUPUS-LIKE SYNDROME [None]
  - PLEURISY [None]
